FAERS Safety Report 6989037-6 (Version None)
Quarter: 2010Q3

REPORT INFORMATION
  Report Type: 
  Country: None (occurrence: None)
  Receive Date: 20100916
  Receipt Date: 20091012
  Transmission Date: 20110219
  Serious: Yes (Other)
  Sender: FDA-Public Use
  Company Number: US-PFIZER INC-2009233625

PATIENT
  Sex: Female
  Weight: 67.574 kg

DRUGS (1)
  1. LYRICA [Suspect]
     Indication: NEURALGIA
     Dosage: 25 MG, 3X/DAY
     Dates: start: 20080101

REACTIONS (4)
  - ANKLE FRACTURE [None]
  - DEPRESSION [None]
  - FIBULA FRACTURE [None]
  - WEIGHT INCREASED [None]
